FAERS Safety Report 6372417-X (Version None)
Quarter: 2009Q3

REPORT INFORMATION
  Report Type: 
  Country: None (occurrence: None)
  Receive Date: 20090924
  Receipt Date: 20080805
  Transmission Date: 20100115
  Serious: Yes (Other)
  Sender: FDA-Public Use
  Company Number: US-ASTRAZENECA-2008UW15716

PATIENT
  Sex: Female

DRUGS (5)
  1. SEROQUEL [Suspect]
     Indication: ANXIETY
     Route: 048
  2. ZOLOFT [Concomitant]
  3. WELLBUTRIN [Concomitant]
  4. LIPITOR [Concomitant]
  5. NORVASC [Concomitant]

REACTIONS (1)
  - TARDIVE DYSKINESIA [None]
